FAERS Safety Report 10257281 (Version 3)
Quarter: 2014Q4

REPORT INFORMATION
  Report Type: Spontaneous
  Country: CA (occurrence: None)
  Receive Date: 20140620
  Receipt Date: 20141208
  Transmission Date: 20150528
  Serious: Yes (Hospitalization, Other)
  Sender: FDA-Public Use
  Company Number: ADR-2014-00910

PATIENT
  Sex: Female

DRUGS (2)
  1. STEMETIL [Suspect]
     Active Substance: PROCHLORPERAZINE MALEATE
  2. LIORESAL [Suspect]
     Active Substance: BACLOFEN

REACTIONS (26)
  - Thyroid disorder [None]
  - Aggression [None]
  - Petit mal epilepsy [None]
  - Device connection issue [None]
  - Confusional state [None]
  - Tachycardia [None]
  - Incision site infection [None]
  - Accidental overdose [None]
  - Somnolence [None]
  - Drug withdrawal syndrome [None]
  - Vomiting [None]
  - Electromagnetic interference [None]
  - Impaired healing [None]
  - Generalised tonic-clonic seizure [None]
  - Drug hypersensitivity [None]
  - Pruritus [None]
  - Implant site haemorrhage [None]
  - Device malfunction [None]
  - Device damage [None]
  - Muscle spasticity [None]
  - Dehydration [None]
  - No therapeutic response [None]
  - Suture rupture [None]
  - Implant site erosion [None]
  - Muscular weakness [None]
  - Device kink [None]
